FAERS Safety Report 5795661-9 (Version None)
Quarter: 2008Q2

REPORT INFORMATION
  Report Type: 
  Country: None (occurrence: None)
  Receive Date: 20080630
  Receipt Date: 20080620
  Transmission Date: 20081010
  Serious: Yes (Hospitalization)
  Sender: FDA-Public Use
  Company Number: FR-PFIZER INC-2008052884

PATIENT
  Sex: Female

DRUGS (11)
  1. LYRICA [Interacting]
     Route: 048
     Dates: start: 20080401, end: 20080101
  2. COAPROVEL [Suspect]
     Route: 048
  3. FUROSEMIDE [Suspect]
     Route: 048
  4. NEBIVOLOL HCL [Suspect]
     Route: 048
  5. LERCANIDIPINE [Suspect]
     Route: 048
  6. AMOXICILLIN [Suspect]
     Route: 048
  7. METFORMIN HCL [Suspect]
     Route: 048
  8. INSULIN DETEMIR [Suspect]
     Route: 058
  9. FLECAINIDE ACETATE [Suspect]
     Dosage: DAILY DOSE:150MG
     Route: 048
  10. FLUOXETINE [Suspect]
     Route: 048
  11. FLUINDIONE [Concomitant]

REACTIONS (2)
  - HYPERKALAEMIA [None]
  - RENAL FAILURE ACUTE [None]
